FAERS Safety Report 5309314-4 (Version None)
Quarter: 2007Q2

REPORT INFORMATION
  Report Type: 
  Country: None (occurrence: None)
  Receive Date: 20070425
  Receipt Date: 20070425
  Transmission Date: 20071010
  Serious: Yes (Hospitalization)
  Sender: FDA-Public Use
  Company Number: None

PATIENT
  Age: 60 Year
  Sex: Female
  Weight: 86 kg

DRUGS (8)
  1. ABILIFY [Suspect]
     Indication: SCHIZOPHRENIA, PARANOID TYPE
     Dosage: 30MG PO HS
     Route: 048
     Dates: start: 20060725
  2. TRILAFON [Suspect]
     Dosage: 2MG PO AM + HS
     Route: 048
     Dates: start: 20061121, end: 20061201
  3. CLONAZEPAM [Concomitant]
  4. LORAZEPAM [Concomitant]
  5. LISINOPRIL [Concomitant]
  6. HYDROCHLOROTHIAZIDE [Concomitant]
  7. TRICOR [Concomitant]
  8. LIPITOR [Concomitant]

REACTIONS (1)
  - GRAND MAL CONVULSION [None]
